FAERS Safety Report 6130445-3 (Version None)
Quarter: 2009Q1

REPORT INFORMATION
  Report Type: 
  Country: None (occurrence: None)
  Receive Date: 20090323
  Receipt Date: 20090311
  Transmission Date: 20090719
  Serious: Yes (Hospitalization, Other)
  Sender: FDA-Public Use
  Company Number: 2009-00915

PATIENT
  Age: 52 Year
  Sex: Male
  Weight: 103.8 kg

DRUGS (2)
  1. VELCADE [Suspect]
     Indication: NON-SMALL CELL LUNG CANCER
     Dosage: 1.6 MG/M2, INTRAVENOUS
     Route: 042
     Dates: start: 20090114, end: 20090211
  2. TAXOTERE [Suspect]
     Indication: NON-SMALL CELL LUNG CANCER
     Dosage: 75MG/M2, INTRAVENOUS
     Route: 042
     Dates: start: 20090114, end: 20090204

REACTIONS (9)
  - BACK PAIN [None]
  - CEREBRAL INFARCTION [None]
  - CEREBRAL ISCHAEMIA [None]
  - DISEASE PROGRESSION [None]
  - FACIAL PARESIS [None]
  - HYPOALBUMINAEMIA [None]
  - LYMPHOPENIA [None]
  - MUSCULAR WEAKNESS [None]
  - PULMONARY EMBOLISM [None]
